FAERS Safety Report 18265201 (Version 1)
Quarter: 2020Q3

REPORT INFORMATION
  Report Type: Spontaneous
  Country: CH (occurrence: CH)
  Receive Date: 20200914
  Receipt Date: 20200914
  Transmission Date: 20201103
  Serious: Yes (Hospitalization)
  Sender: FDA-Public Use
  Company Number: CH-PURDUE-USA-2020-0166109

PATIENT
  Age: 63 Year
  Sex: Female
  Weight: 108.6 kg

DRUGS (18)
  1. DUPHALAC [Concomitant]
     Active Substance: LACTULOSE
     Dosage: 20 ML, AM (20ML?0?0)
  2. PREDNISONE. [Concomitant]
     Active Substance: PREDNISONE
     Indication: ASTHMA
     Dosage: UNK
     Dates: start: 20200727, end: 20200802
  3. PANTOZOL [Concomitant]
     Active Substance: PANTOPRAZOLE SODIUM
     Dosage: 40 MG, AM (1?0?0)
  4. ASPIRIN CARDIO [Concomitant]
     Active Substance: ASPIRIN
     Dosage: 100 MG, AM (1?0?0)
  5. CARVEDILOL. [Concomitant]
     Active Substance: CARVEDILOL
     Dosage: 6.25 MG, AM (1?0?0)
  6. EUTHYROX [Concomitant]
     Active Substance: LEVOTHYROXINE SODIUM
     Dosage: 50 MCG, AM (1?0?0)
  7. SERETIDE [Concomitant]
     Active Substance: FLUTICASONE PROPIONATE\SALMETEROL XINAFOATE
     Dosage: UNK UNK, BID (2?0?2)
  8. DOSPIR [Concomitant]
     Active Substance: ALBUTEROL SULFATE\IPRATROPIUM BROMIDE
     Dosage: UNK UNK, BID (1?0?1)
     Route: 055
  9. SINGULAIR [Concomitant]
     Active Substance: MONTELUKAST SODIUM
     Dosage: 10 MG, NOCTE (0?0?1)
     Dates: start: 20200727
  10. UNIFYL CONTINUS [Suspect]
     Active Substance: THEOPHYLLINE
     Indication: ASTHMA
     Dosage: 600 MG, DAILY, 1?0?0.5 [STRENGTH 400MG]
     Route: 065
     Dates: start: 20200731, end: 20200810
  11. ALDACTONE [Concomitant]
     Active Substance: SPIRONOLACTONE
     Dosage: 100 MG, AM (1?0?0)
  12. XIFAXAN [Concomitant]
     Active Substance: RIFAXIMIN
     Dosage: 550 MG, BID (1?0?1)
  13. VITAMIN D3 STREULI [Concomitant]
     Active Substance: CHOLECALCIFEROL
     Dosage: 800 IU, DAILY
  14. VITAMIN B1                         /00056102/ [Concomitant]
     Active Substance: THIAMINE HYDROCHLORIDE
     Dosage: 300 MG, DAILY
  15. AMLODIPINE BESILATE [Concomitant]
     Active Substance: AMLODIPINE BESYLATE
     Dosage: 10 MG, AM (1?0?0)
  16. TOREM                              /01036501/ [Concomitant]
     Active Substance: TORSEMIDE
     Dosage: 30 MG, DAILY (2?0?1, STRENGTH 10MG)
  17. ESCITALOPRAM [Concomitant]
     Active Substance: ESCITALOPRAM OXALATE
     Dosage: 10 MG, AM (1?0?0)
     Dates: end: 20200810
  18. FRAGMIN [Concomitant]
     Active Substance: DALTEPARIN SODIUM
     Dosage: 5000 IU, DAILY
     Route: 058

REACTIONS (9)
  - Depressed level of consciousness [Recovered/Resolved]
  - Nausea [Recovered/Resolved]
  - Tremor [Recovered/Resolved]
  - Restlessness [Recovered/Resolved]
  - Epilepsy [Recovered/Resolved]
  - Anxiety [Recovered/Resolved]
  - Product administration error [Unknown]
  - Diarrhoea [Recovered/Resolved]
  - Toxicity to various agents [Recovered/Resolved]

NARRATIVE: CASE EVENT DATE: 20200731
